FAERS Safety Report 16115006 (Version 1)
Quarter: 2019Q1

REPORT INFORMATION
  Report Type: Spontaneous
  Country: CN (occurrence: CN)
  Receive Date: 20190325
  Receipt Date: 20190325
  Transmission Date: 20190418
  Serious: Yes (Life-Threatening, Hospitalization, Other)
  Sender: FDA-Public Use
  Company Number: CN-PFIZER INC-2019129008

PATIENT
  Age: 69 Year
  Sex: Female
  Weight: 55 kg

DRUGS (4)
  1. ETOPOSIDE. [Suspect]
     Active Substance: ETOPOSIDE
     Indication: ACUTE LEUKAEMIA
     Dosage: 0.1 G, 1X/DAY
     Route: 041
     Dates: start: 20190306, end: 20190309
  2. SODIUM CHLORIDE. [Concomitant]
     Active Substance: SODIUM CHLORIDE
     Indication: VEHICLE SOLUTION USE
     Dosage: 250 ML, 1X/DAY
     Route: 041
     Dates: start: 20190306, end: 20190309
  3. SODIUM CHLORIDE. [Concomitant]
     Active Substance: SODIUM CHLORIDE
     Dosage: 500 ML, 1X/DAY
     Route: 041
     Dates: start: 20190306, end: 20190310
  4. CYTOSAR [Suspect]
     Active Substance: CYTARABINE
     Indication: ACUTE LEUKAEMIA
     Dosage: 0.5 G, 1X/DAY
     Route: 041
     Dates: start: 20190306, end: 20190310

REACTIONS (2)
  - Platelet count decreased [Recovering/Resolving]
  - Gingival bleeding [Recovering/Resolving]

NARRATIVE: CASE EVENT DATE: 20190316
